FAERS Safety Report 9245900 (Version 2)
Quarter: 2013Q3

REPORT INFORMATION
  Report Type: Spontaneous
  Country: US (occurrence: US)
  Receive Date: 20130422
  Receipt Date: 20130724
  Transmission Date: 20140515
  Serious: No
  Sender: FDA-Public Use
  Company Number: US-BRISTOL-MYERS SQUIBB COMPANY-18711267

PATIENT
  Age: 85 Year
  Sex: Male
  Weight: 66.21 kg

DRUGS (7)
  1. ELIQUIS [Suspect]
     Indication: ATRIAL FIBRILLATION
     Dosage: 26MAR2013,5MG TWICE A DAY
     Dates: start: 20130325
  2. LISINOPRIL [Concomitant]
  3. METOPROLOL [Concomitant]
  4. TRILEPTAL [Concomitant]
  5. LASIX [Concomitant]
  6. OMEGA-3 [Concomitant]
  7. VITAMINS [Concomitant]

REACTIONS (3)
  - Drug prescribing error [Unknown]
  - Blood pressure fluctuation [Unknown]
  - Syncope [Unknown]
